FAERS Safety Report 24265346 (Version 2)
Quarter: 2025Q3

REPORT INFORMATION
  Report Type: Report from Study
  Country: EG (occurrence: EG)
  Receive Date: 20240829
  Receipt Date: 20250716
  Transmission Date: 20251021
  Serious: Yes (Hospitalization, Disabling, Other)
  Sender: NOVARTIS
  Company Number: EG-002147023-NVSC2024EG164104

PATIENT
  Sex: Female
  Weight: 49.5 kg

DRUGS (3)
  1. GILENYA [Suspect]
     Active Substance: FINGOLIMOD HYDROCHLORIDE
     Indication: Multiple sclerosis
     Dosage: 1 DOSAGE FORM, QD STARTED-FROM 2 YEARS
     Route: 048
     Dates: end: 202406
  2. Dimra [Concomitant]
     Indication: Muscle relaxant therapy
     Dosage: 1 DOSAGE FORM, ONE TAB TWICE DAILY
     Route: 048
     Dates: start: 20240807
  3. LEVOTHYROXINE [Concomitant]
     Active Substance: LEVOTHYROXINE
     Indication: Hypothyroidism
     Route: 048

REACTIONS (12)
  - Multiple sclerosis relapse [Recovered/Resolved]
  - Multiple sclerosis relapse [Recovering/Resolving]
  - Speech disorder [Not Recovered/Not Resolved]
  - Fatigue [Not Recovered/Not Resolved]
  - Pollakiuria [Not Recovered/Not Resolved]
  - Seizure [Not Recovered/Not Resolved]
  - Haemoglobin decreased [Unknown]
  - Blood calcium decreased [Unknown]
  - Weight decreased [Not Recovered/Not Resolved]
  - White blood cell count decreased [Unknown]
  - Drug ineffective [Unknown]
  - Product dispensing issue [Unknown]

NARRATIVE: CASE EVENT DATE: 20220101
